FAERS Safety Report 20233561 (Version 1)
Quarter: 2021Q4

REPORT INFORMATION
  Report Type: Spontaneous
  Country: US (occurrence: US)
  Receive Date: 20211227
  Receipt Date: 20211227
  Transmission Date: 20220303
  Serious: Yes (Other)
  Sender: FDA-Public Use
  Company Number: US-GLAXOSMITHKLINE-USCH2021091566

PATIENT

DRUGS (1)
  1. ROBITUSSIN NOS [Suspect]
     Active Substance: ACETAMINOPHEN\CHLORPHENIRAMINE HYDROCHLORIDE\DEXTROMETHORPHAN\GUAIFENESIN\PHENYLPROPANOLAMINE HYDROC
     Indication: Product used for unknown indication
     Dosage: UNK

REACTIONS (1)
  - Drug abuse [Unknown]
